FAERS Safety Report 22177012 (Version 1)
Quarter: 2023Q2

REPORT INFORMATION
  Report Type: Spontaneous
  Country: FR (occurrence: FR)
  Receive Date: 20230405
  Receipt Date: 20230405
  Transmission Date: 20230722
  Serious: No
  Sender: FDA-Public Use
  Company Number: FR-PFIZER INC-PV202300062450

PATIENT

DRUGS (2)
  1. PAXLOVID [Suspect]
     Active Substance: NIRMATRELVIR\RITONAVIR
     Indication: COVID-19 treatment
  2. FLECAINIDE [Suspect]
     Active Substance: FLECAINIDE
     Dosage: UNK

REACTIONS (2)
  - Contraindicated product prescribed [Unknown]
  - Intercepted product prescribing error [Unknown]
